FAERS Safety Report 12118986 (Version 1)
Quarter: 2016Q1

REPORT INFORMATION
  Report Type: Spontaneous
  Country: US (occurrence: None)
  Receive Date: 20160225
  Receipt Date: 20160225
  Transmission Date: 20160526
  Serious: Yes (Other)
  Sender: FDA-Public Use
  Company Number: None

PATIENT
  Age: 24 Year
  Sex: Female
  Weight: 99.79 kg

DRUGS (27)
  1. ALUMINA [Concomitant]
  2. CLONAZEPAM. [Concomitant]
     Active Substance: CLONAZEPAM
  3. PANTOPRAZOLE [Concomitant]
     Active Substance: PANTOPRAZOLE SODIUM
  4. ULT-TRAMADOL [Concomitant]
  5. ACETAMINOPHEN. [Concomitant]
     Active Substance: ACETAMINOPHEN
  6. SUMATRIPTAN. [Concomitant]
     Active Substance: SUMATRIPTAN
  7. LAMOTRIGINE 25MG MYLAN [Suspect]
     Active Substance: LAMOTRIGINE
     Indication: AFFECTIVE DISORDER
     Route: 048
     Dates: start: 20160125, end: 20160211
  8. DIPHENHYDRAMINE. [Concomitant]
     Active Substance: DIPHENHYDRAMINE
  9. ALBUTEROL/IPRATROPIUM [Concomitant]
     Active Substance: ALBUTEROL\IPRATROPIUM
  10. PSYLLIUM SEED EXTRACT [Concomitant]
  11. SOD CHLORIDE [Concomitant]
  12. BISMUTH SUBSALICYLATE. [Concomitant]
     Active Substance: BISMUTH SUBSALICYLATE
  13. GABAPENTIN. [Concomitant]
     Active Substance: GABAPENTIN
  14. IBUPROFEN. [Concomitant]
     Active Substance: IBUPROFEN
  15. MILK OF MAGNESIA [Concomitant]
     Active Substance: MAGNESIUM HYDROXIDE
  16. NICOTINE POLACRILEX [Concomitant]
     Active Substance: NICOTINE
  17. GUAIFENESIN. [Concomitant]
     Active Substance: GUAIFENESIN
  18. TOLNAFTATE. [Concomitant]
     Active Substance: TOLNAFTATE
  19. LIP-ATORVASTATIN [Concomitant]
  20. LURASIDONE [Concomitant]
     Active Substance: LURASIDONE
  21. PROCHLORPERAZINE. [Concomitant]
     Active Substance: PROCHLORPERAZINE
  22. MAG CARB [Concomitant]
  23. ALGINIC ANALGESIC BALM OINTMENT [Concomitant]
  24. D VITAMIN [Concomitant]
  25. FLUPHENAZINE [Concomitant]
     Active Substance: FLUPHENAZINE
  26. LEVOTHYROXINE. [Concomitant]
     Active Substance: LEVOTHYROXINE
  27. ONDANSETRON ODT [Concomitant]
     Active Substance: ONDANSETRON

REACTIONS (1)
  - Rash [None]

NARRATIVE: CASE EVENT DATE: 20160211
